FAERS Safety Report 8435017-3 (Version None)
Quarter: 2012Q2

REPORT INFORMATION
  Report Type: 
  Country: None (occurrence: None)
  Receive Date: 20120614
  Receipt Date: 20120611
  Transmission Date: 20120825
  Serious: No
  Sender: FDA-Public Use
  Company Number: US-PFIZER INC-2012140793

PATIENT
  Sex: Male
  Weight: 99.77 kg

DRUGS (7)
  1. ZOLOFT [Suspect]
     Indication: POST-TRAUMATIC STRESS DISORDER
     Dosage: UNK
  2. LISINOPRIL [Suspect]
     Dosage: UNK
  3. ZESTRIL [Concomitant]
     Dosage: UNK
  4. ASPIRIN [Suspect]
     Dosage: UNK
  5. METOPROLOL [Concomitant]
     Dosage: UNK
  6. ALPRAZOLAM [Suspect]
     Dosage: UNK
  7. SERTRALINE HYDROCHLORIDE [Suspect]
     Indication: POST-TRAUMATIC STRESS DISORDER
     Dosage: 200 MG, 1X/DAY

REACTIONS (5)
  - DRUG INEFFECTIVE [None]
  - HYPERHIDROSIS [None]
  - DRY MOUTH [None]
  - HOT FLUSH [None]
  - COUGH [None]
